FAERS Safety Report 6819385-1 (Version None)
Quarter: 2010Q3

REPORT INFORMATION
  Report Type: 
  Country: None (occurrence: None)
  Receive Date: 20100707
  Receipt Date: 20100628
  Transmission Date: 20110219
  Serious: Yes (Life-Threatening, Other)
  Sender: FDA-Public Use
  Company Number: GB-PFIZER INC-2010080017

PATIENT
  Age: 50 Year
  Sex: Male
  Weight: 72 kg

DRUGS (9)
  1. CHAMPIX [Suspect]
     Dosage: UNK
     Route: 048
     Dates: start: 20100603, end: 20100614
  2. AMITRIPTYLINE [Concomitant]
  3. MONTELUKAST [Concomitant]
  4. OMEPRAZOLE [Concomitant]
  5. QUININE [Concomitant]
  6. SALBUTAMOL [Concomitant]
  7. SYMBICORT [Concomitant]
  8. THIAMINE [Concomitant]
  9. VITAMIN B COMPLEX CAP [Concomitant]

REACTIONS (3)
  - CHRONIC OBSTRUCTIVE PULMONARY DISEASE [None]
  - HALLUCINATION [None]
  - SUICIDAL IDEATION [None]
